FAERS Safety Report 10607580 (Version 1)
Quarter: 2014Q4

REPORT INFORMATION
  Report Type: Spontaneous
  Country: US (occurrence: US)
  Receive Date: 20141125
  Receipt Date: 20141125
  Transmission Date: 20150529
  Serious: Yes (Other)
  Sender: FDA-Public Use
  Company Number: US-ABBVIE-14P-163-1311426-00

PATIENT
  Age: 24 Year
  Sex: Male

DRUGS (1)
  1. TESTOSTERONE. [Suspect]
     Active Substance: TESTOSTERONE
     Indication: PRODUCT USED FOR UNKNOWN INDICATION
     Dosage: SINCE AGE 17
     Route: 065

REACTIONS (4)
  - Drug abuse [Unknown]
  - Hepatocellular carcinoma [Unknown]
  - Coronary artery disease [Unknown]
  - Chronic kidney disease [Unknown]
